FAERS Safety Report 21331625 (Version 1)
Quarter: 2022Q3

REPORT INFORMATION
  Report Type: Spontaneous
  Country: FR (occurrence: FR)
  Receive Date: 20220914
  Receipt Date: 20220914
  Transmission Date: 20221026
  Serious: Yes (Death)
  Sender: FDA-Public Use
  Company Number: None

PATIENT
  Age: 48 Year
  Sex: Male

DRUGS (10)
  1. VIMPAT [Suspect]
     Active Substance: LACOSAMIDE
     Indication: Seizure
     Dosage: 50 MILLIGRAM, 2X/DAY (BID)
     Dates: end: 201905
  2. QUESTRAN [Suspect]
     Active Substance: CHOLESTYRAMINE
     Indication: Product used for unknown indication
     Dosage: 4 MILLIGRAM, 3X/DAY (TID)
     Dates: end: 20190509
  3. ENVARSUS XR [Suspect]
     Active Substance: TACROLIMUS
     Indication: Liver transplant
     Dosage: 0.75 MILLIGRAM, ONCE DAILY (QD)
     Dates: end: 201905
  4. FUROSEMIDE [Suspect]
     Active Substance: FUROSEMIDE
     Indication: Hypertension
     Dosage: 125 MILLIGRAM, ONCE DAILY (QD)
     Dates: end: 20190509
  5. MEDROL [Suspect]
     Active Substance: METHYLPREDNISOLONE
     Indication: Liver transplant
     Dosage: 16 MILLIGRAM, ONCE DAILY (QD)
     Dates: end: 20190509
  6. NEBIVOLOL [Suspect]
     Active Substance: NEBIVOLOL
     Indication: Hypertension
     Dosage: 5 MILLIGRAM, ONCE DAILY (QD)
     Dates: end: 201905
  7. CALCIUM CARBONATE\CHOLECALCIFEROL [Suspect]
     Active Substance: CALCIUM CARBONATE\CHOLECALCIFEROL
     Indication: Multi-vitamin deficiency
     Dosage: 2 SACHETS LE MIDI
     Dates: end: 201905
  8. NOXAFIL [Suspect]
     Active Substance: POSACONAZOLE
     Indication: Infection
     Dosage: 100MG STRENGTH, 3 DOSAGE FORM  ONCE DAILY
     Dates: start: 201904, end: 201905
  9. LERCANIDIPINE [Concomitant]
     Active Substance: LERCANIDIPINE
     Indication: Product used for unknown indication
  10. ALPRAZOLAM [Concomitant]
     Active Substance: ALPRAZOLAM
     Indication: Product used for unknown indication

REACTIONS (1)
  - Pancreatitis acute [Fatal]

NARRATIVE: CASE EVENT DATE: 20190504
